FAERS Safety Report 9713291 (Version 2)
Quarter: 2013Q4

REPORT INFORMATION
  Report Type: Spontaneous
  Country: US (occurrence: US)
  Receive Date: 20131126
  Receipt Date: 20131224
  Transmission Date: 20140711
  Serious: Yes (Other)
  Sender: FDA-Public Use
  Company Number: US-SA-2013SA122555

PATIENT
  Age: 46 Year
  Sex: Male

DRUGS (1)
  1. LANTUS [Suspect]
     Indication: TYPE 1 DIABETES MELLITUS
     Dosage: TAKEN FROM:15 YEARS AGO. DOSE:13 UNIT(S)
     Route: 051

REACTIONS (5)
  - Eye disorder [Unknown]
  - Visual impairment [Unknown]
  - Coma [Unknown]
  - Blood glucose increased [Unknown]
  - Drug ineffective [Unknown]
